FAERS Safety Report 8332926-0 (Version None)
Quarter: 2012Q1

REPORT INFORMATION
  Report Type: 
  Country: None (occurrence: None)
  Receive Date: 20120327
  Receipt Date: 20110301
  Transmission Date: 20120608
  Serious: Yes (Hospitalization, Other)
  Sender: FDA-Public Use
  Company Number: PHHY2011US09793

PATIENT
  Age: 73 Year
  Sex: Female
  Weight: 68 kg

DRUGS (5)
  1. VERPAMIL (VERAPAMIL) [Concomitant]
  2. GLEEVEC [Suspect]
     Indication: GASTROINTESTINAL STROMAL TUMOUR
     Dosage: 400 MG, DAILY, ORAL ; 400 MG, QD, ORAL ; ORAL
     Route: 048
     Dates: start: 20110205
  3. GLEEVEC [Suspect]
     Indication: GASTROINTESTINAL STROMAL TUMOUR
     Dosage: 400 MG, DAILY, ORAL ; 400 MG, QD, ORAL ; ORAL
     Route: 048
     Dates: start: 20110105
  4. GLEEVEC [Suspect]
     Indication: GASTROINTESTINAL STROMAL TUMOUR
     Dosage: 400 MG, DAILY, ORAL ; 400 MG, QD, ORAL ; ORAL
     Route: 048
     Dates: start: 20110117, end: 20110118
  5. SINGULAIR [Concomitant]

REACTIONS (4)
  - DYSPNOEA [None]
  - THROMBOSIS [None]
  - CHEST PAIN [None]
  - DEEP VEIN THROMBOSIS [None]
